FAERS Safety Report 19504748 (Version 2)
Quarter: 2021Q3

REPORT INFORMATION
  Report Type: Report from Study
  Country: US (occurrence: US)
  Receive Date: 20210707
  Receipt Date: 20210809
  Transmission Date: 20211014
  Serious: Yes (Death, Other)
  Sender: FDA-Public Use
  Company Number: US-BEIGENE, LTD-BGN-2021-002358

PATIENT

DRUGS (3)
  1. BRUKINSA [Suspect]
     Active Substance: ZANUBRUTINIB
     Indication: CHRONIC LYMPHOCYTIC LEUKAEMIA
     Dosage: 160 MILLIGRAM, BID
     Route: 048
     Dates: start: 20210219, end: 20210317
  2. ELIQUIS [Concomitant]
     Active Substance: APIXABAN
  3. BRUKINSA [Suspect]
     Active Substance: ZANUBRUTINIB
     Dosage: 80 MILLIGRAM
     Dates: start: 20210317, end: 20210625

REACTIONS (6)
  - Skin discolouration [Unknown]
  - Off label use [Unknown]
  - Myocardial infarction [Fatal]
  - Swelling [Recovering/Resolving]
  - Cardiogenic shock [Fatal]
  - Contusion [Unknown]

NARRATIVE: CASE EVENT DATE: 20210317
